FAERS Safety Report 19685800 (Version 1)
Quarter: 2021Q3

REPORT INFORMATION
  Report Type: Spontaneous
  Country: GR (occurrence: GR)
  Receive Date: 20210811
  Receipt Date: 20210811
  Transmission Date: 20211014
  Serious: Yes (Other)
  Sender: FDA-Public Use
  Company Number: GR-ASTRAZENECA-2021A618194

PATIENT
  Age: 78 Year
  Sex: Female
  Weight: 60 kg

DRUGS (17)
  1. CONCOR [Suspect]
     Active Substance: BISOPROLOL FUMARATE
     Indication: CARDIOVASCULAR DISORDER
     Dosage: 2 UNK, 1/DAY
     Route: 065
  2. INEGY [Suspect]
     Active Substance: EZETIMIBE\SIMVASTATIN
     Indication: PRODUCT USED FOR UNKNOWN INDICATION
     Dosage: UNK
     Route: 048
  3. BROMAZEPAM [Suspect]
     Active Substance: BROMAZEPAM
     Indication: PRODUCT USED FOR UNKNOWN INDICATION
     Dosage: UNK
     Route: 065
  4. NEXIUM [Suspect]
     Active Substance: ESOMEPRAZOLE MAGNESIUM
     Indication: PRODUCT USED FOR UNKNOWN INDICATION
     Dosage: UNK
     Route: 065
  5. COVERSYL [Suspect]
     Active Substance: PERINDOPRIL
     Indication: ARRHYTHMIA
     Dosage: 1 UNK, 1/DAY
     Route: 065
  6. ZODIN (OMEGA?3?ACID ETHYL ESTERS) [Suspect]
     Active Substance: OMEGA-3-ACID ETHYL ESTERS
     Indication: BLOOD TRIGLYCERIDES
     Route: 065
     Dates: start: 20210530, end: 20210613
  7. NEURONTIN [Suspect]
     Active Substance: GABAPENTIN
     Indication: NERVOUS SYSTEM DISORDER
     Dosage: 300 MILLIGRAM300.0MG UNKNOWN
     Route: 065
     Dates: start: 20210530, end: 20210613
  8. COSOPT [Suspect]
     Active Substance: DORZOLAMIDE HYDROCHLORIDE\TIMOLOL MALEATE
     Indication: GLAUCOMA
     Dosage: 20 MILLIGRAM20.0MG UNKNOWN
     Route: 065
  9. VITAMIN D [Suspect]
     Active Substance: VITAMIN D NOS
     Indication: PRODUCT USED FOR UNKNOWN INDICATION
     Dosage: 1 DOSAGE FORM, 1/DAY
     Route: 065
     Dates: start: 20210530, end: 20210613
  10. COVERSYL [Suspect]
     Active Substance: PERINDOPRIL
     Indication: CARDIOVASCULAR DISORDER
     Dosage: 1 UNK, 1/DAY
     Route: 065
  11. CONCOR [Suspect]
     Active Substance: BISOPROLOL FUMARATE
     Indication: ARRHYTHMIA
     Dosage: 2 UNK, 1/DAY
     Route: 065
  12. DEPON [Suspect]
     Active Substance: ACETAMINOPHEN
     Indication: BACK PAIN
     Dosage: UNK
     Route: 065
  13. INEGY [Suspect]
     Active Substance: EZETIMIBE\SIMVASTATIN
     Indication: PRODUCT USED FOR UNKNOWN INDICATION
     Route: 048
     Dates: start: 2019, end: 20210417
  14. BEPANTHOL [DEXPANTHENOL] [Suspect]
     Active Substance: DEXPANTHENOL
     Indication: PRURITUS
     Dosage: UNK
     Route: 065
  15. EVIOL [Suspect]
     Active Substance: TOCOPHEROL
     Indication: PRODUCT USED FOR UNKNOWN INDICATION
     Dosage: UNK
     Route: 065
  16. MAXUDIN [Suspect]
     Active Substance: PRAVASTATIN SODIUM
     Indication: BLOOD CHOLESTEROL INCREASED
     Route: 065
     Dates: start: 20210530, end: 20210613
  17. LEPUR [Suspect]
     Active Substance: SIMVASTATIN
     Indication: BLOOD CHOLESTEROL
     Dosage: UNK
     Route: 065

REACTIONS (31)
  - Amnesia [Recovered/Resolved]
  - Contusion [Unknown]
  - Loss of consciousness [Unknown]
  - Tooth fracture [Unknown]
  - Blood glucose abnormal [Unknown]
  - Confusional state [Recovered/Resolved]
  - Blood triglycerides increased [Unknown]
  - Wrist fracture [Unknown]
  - Coccydynia [Unknown]
  - Arrhythmia [Unknown]
  - Pruritus [Recovering/Resolving]
  - Myalgia [Recovering/Resolving]
  - Musculoskeletal discomfort [Unknown]
  - Dizziness [Unknown]
  - Fall [Unknown]
  - Psoriasis [Unknown]
  - Osteopenia [Unknown]
  - Blood cholesterol increased [Unknown]
  - Muscle swelling [Unknown]
  - Spinal column injury [Unknown]
  - Kyphosis [Unknown]
  - Swelling face [Unknown]
  - Abnormal dreams [Recovered/Resolved]
  - Arthralgia [Recovering/Resolving]
  - Nausea [Unknown]
  - Vomiting [Unknown]
  - Gastrointestinal disorder [Unknown]
  - Anxiety [Recovered/Resolved]
  - Accident [Unknown]
  - Alopecia [Unknown]
  - Muscular weakness [Unknown]

NARRATIVE: CASE EVENT DATE: 20191227
